FAERS Safety Report 17068042 (Version 1)
Quarter: 2019Q4

REPORT INFORMATION
  Report Type: Report from Study
  Country: US (occurrence: US)
  Receive Date: 20191122
  Receipt Date: 20191122
  Transmission Date: 20200122
  Serious: Yes (Hospitalization)
  Sender: FDA-Public Use
  Company Number: US-ACTELION-A-US2019-196443

PATIENT
  Sex: Female

DRUGS (13)
  1. MYRBETRIQ [Concomitant]
     Active Substance: MIRABEGRON
  2. ESCITALOPRAM [Concomitant]
     Active Substance: ESCITALOPRAM OXALATE
  3. WARFARIN [Concomitant]
     Active Substance: WARFARIN
  4. LISINOPRIL. [Concomitant]
     Active Substance: LISINOPRIL
  5. OPSUMIT [Suspect]
     Active Substance: MACITENTAN
     Indication: PULMONARY ARTERIAL HYPERTENSION
     Dosage: 10 MG, QD
     Route: 048
  6. AMLODIPINE [Concomitant]
     Active Substance: AMLODIPINE BESYLATE
  7. LOVASTATIN. [Concomitant]
     Active Substance: LOVASTATIN
  8. METOPROLOL SUCCINATE. [Concomitant]
     Active Substance: METOPROLOL SUCCINATE
  9. ALBUTEROL. [Concomitant]
     Active Substance: ALBUTEROL
  10. BUPROPION. [Concomitant]
     Active Substance: BUPROPION
  11. LEVOTHYROXIN [Concomitant]
     Active Substance: LEVOTHYROXINE
  12. LYRICA [Concomitant]
     Active Substance: PREGABALIN
  13. SILDENAFIL. [Concomitant]
     Active Substance: SILDENAFIL

REACTIONS (3)
  - Product dose omission [Unknown]
  - Adverse event [Unknown]
  - Dyskinesia [Unknown]
